FAERS Safety Report 6359183-9 (Version None)
Quarter: 2009Q3

REPORT INFORMATION
  Report Type: 
  Country: None (occurrence: None)
  Receive Date: 20090917
  Receipt Date: 20090910
  Transmission Date: 20100115
  Serious: Yes (Other)
  Sender: FDA-Public Use
  Company Number: US-RANBAXY-2009US-27894

PATIENT

DRUGS (1)
  1. ACETAMINOPHEN [Suspect]
     Indication: PAIN
     Dosage: 650 MG, 2QAM,2QPM
     Route: 048
     Dates: start: 20090908, end: 20090910

REACTIONS (5)
  - GLOSSODYNIA [None]
  - HEAD DISCOMFORT [None]
  - HYPOAESTHESIA [None]
  - HYPOAESTHESIA ORAL [None]
  - PAIN [None]
